FAERS Safety Report 18009204 (Version 1)
Quarter: 2020Q3

REPORT INFORMATION
  Report Type: Spontaneous
  Country: US (occurrence: US)
  Receive Date: 20200710
  Receipt Date: 20200710
  Transmission Date: 20201103
  Serious: Yes (Hospitalization)
  Sender: FDA-Public Use
  Company Number: US-SAOL THERAPEUTICS-2020SAO00097

PATIENT
  Age: 1 Year
  Sex: Female

DRUGS (2)
  1. ORAL BACLOFEN [Concomitant]
     Active Substance: BACLOFEN
  2. LIORESAL [Suspect]
     Active Substance: BACLOFEN
     Dosage: 619.1 ?G, \DAY (^25.8 ?G/HOUR^)
     Route: 037

REACTIONS (10)
  - Vomiting [Unknown]
  - Insomnia [Unknown]
  - Restlessness [Recovering/Resolving]
  - Respiratory disorder [Unknown]
  - Hyperhidrosis [Not Recovered/Not Resolved]
  - Drug withdrawal syndrome [Not Recovered/Not Resolved]
  - Anal incontinence [Unknown]
  - Overdose [Unknown]
  - Device issue [Unknown]
  - Tremor [Unknown]

NARRATIVE: CASE EVENT DATE: 20000228
